FAERS Safety Report 22131280 (Version 1)
Quarter: 2023Q1

REPORT INFORMATION
  Report Type: Spontaneous
  Country: US (occurrence: None)
  Receive Date: 20230322
  Receipt Date: 20230322
  Transmission Date: 20230418
  Serious: No
  Sender: FDA-Public Use
  Company Number: None

PATIENT
  Age: 57 Year
  Sex: Male

DRUGS (3)
  1. LINEZOLID [Suspect]
     Active Substance: LINEZOLID
     Dosage: FREQUENCY : TWICE A DAY;?
     Dates: start: 20230310, end: 20230315
  2. OXYCODONE [Suspect]
     Active Substance: OXYCODONE
  3. FENTANYL [Concomitant]
     Active Substance: FENTANYL

REACTIONS (1)
  - Serotonin syndrome [None]

NARRATIVE: CASE EVENT DATE: 20230315
